FAERS Safety Report 8916346 (Version 5)
Quarter: 2013Q2

REPORT INFORMATION
  Report Type: Spontaneous
  Country: US (occurrence: US)
  Receive Date: 20121120
  Receipt Date: 20130520
  Transmission Date: 20140414
  Serious: Yes (Hospitalization, Other)
  Sender: FDA-Public Use
  Company Number: US-009507513-1211USA007534

PATIENT
  Sex: Female
  Weight: 77.55 kg

DRUGS (1)
  1. NUVARING [Suspect]
     Indication: CONTRACEPTION
     Dosage: UNK
     Route: 067
     Dates: start: 20030926, end: 20090730

REACTIONS (33)
  - Acute myocardial infarction [Unknown]
  - Pulmonary embolism [Unknown]
  - Mitral valve prolapse [Unknown]
  - Reperfusion injury [Unknown]
  - Embolism [Unknown]
  - Stress [Unknown]
  - Anxiety [Not Recovered/Not Resolved]
  - Oropharyngeal pain [Unknown]
  - Weight decreased [Unknown]
  - Menorrhagia [Recovered/Resolved]
  - Drug hypersensitivity [Unknown]
  - Tonsillectomy [Recovered/Resolved]
  - Smear cervix abnormal [Unknown]
  - Coital bleeding [Unknown]
  - Cervix carcinoma stage 0 [Unknown]
  - Cervical dysplasia [Unknown]
  - Fatigue [Unknown]
  - Drug hypersensitivity [Unknown]
  - Blood potassium decreased [Recovered/Resolved]
  - Hypersensitivity [Not Recovered/Not Resolved]
  - Hysterectomy [Unknown]
  - Herpes simplex [Not Recovered/Not Resolved]
  - Coronary artery disease [Not Recovered/Not Resolved]
  - Endometriosis [Unknown]
  - Pleuritic pain [Unknown]
  - Dysmenorrhoea [Recovered/Resolved]
  - Vitamin D decreased [Unknown]
  - Biopsy endometrium [Unknown]
  - Endometrial disorder [Unknown]
  - Pelvic pain [Recovering/Resolving]
  - Obesity [Unknown]
  - Chest pain [Unknown]
  - Tachycardia [Recovered/Resolved]
